FAERS Safety Report 6680891-4 (Version None)
Quarter: 2010Q2

REPORT INFORMATION
  Report Type: 
  Country: None (occurrence: None)
  Receive Date: 20100413
  Receipt Date: 20100413
  Transmission Date: 20101027
  Serious: No
  Sender: FDA-Public Use
  Company Number: None

PATIENT
  Age: 60 Year
  Sex: Female
  Weight: 55.3388 kg

DRUGS (2)
  1. ETHAMBUTOL HYDROCHLORIDE [Suspect]
     Indication: LUNG INFECTION
     Dates: start: 20080915, end: 20081230
  2. ETHAMBUTOL HYDROCHLORIDE [Suspect]
     Indication: MYCOBACTERIUM AVIUM COMPLEX INFECTION
     Dates: start: 20080915, end: 20081230

REACTIONS (4)
  - DRUG PRESCRIBING ERROR [None]
  - NEUROPATHY PERIPHERAL [None]
  - OPTIC NEURITIS [None]
  - OVERDOSE [None]
